FAERS Safety Report 15855940 (Version 3)
Quarter: 2019Q1

REPORT INFORMATION
  Report Type: Spontaneous
  Country: IT (occurrence: IT)
  Receive Date: 20190122
  Receipt Date: 20190215
  Transmission Date: 20190417
  Serious: Yes (Other)
  Sender: FDA-Public Use
  Company Number: IT-ASCEND THERAPEUTICS-2061593

PATIENT
  Age: 40 Year
  Sex: Female

DRUGS (11)
  1. KEPPRA [Concomitant]
     Active Substance: LEVETIRACETAM
     Dates: start: 20110418
  2. CLOBAZAM (CLOBAZAM) [Concomitant]
     Active Substance: CLOBAZAM
  3. GESTODENE(GESTODENE) [Concomitant]
  4. PUREGON(FOLLITROPIN BETA) [Concomitant]
     Route: 030
     Dates: start: 20120517, end: 20120524
  5. LEVETIRACETAM(LEVETIRACETAM) [Concomitant]
     Route: 048
  6. ESTROGEL [Suspect]
     Active Substance: ESTRADIOL
     Indication: ASSISTED REPRODUCTIVE TECHNOLOGY
  7. CETRORELIX ACETATE (CETRORELIX ACETATE) [Concomitant]
  8. PUREGON [FOLLITROPIN BETA] [Interacting]
     Active Substance: FOLLITROPIN
  9. ESTRADIOL VALERATE. [Concomitant]
     Active Substance: ESTRADIOL VALERATE
  10. ETHINYLESTRADIOL(ETHINYLESTRADIOL) [Concomitant]
  11. LAMOTRIGINE. [Concomitant]
     Active Substance: LAMOTRIGINE

REACTIONS (5)
  - Generalised tonic-clonic seizure [Recovered/Resolved]
  - Drug interaction [Unknown]
  - Condition aggravated [Recovered/Resolved]
  - Drug level decreased [Unknown]
  - Drug ineffective [Recovered/Resolved]

NARRATIVE: CASE EVENT DATE: 20120522
